FAERS Safety Report 9097150 (Version 1)
Quarter: 2013Q1

REPORT INFORMATION
  Report Type: Spontaneous
  Country: BR (occurrence: BR)
  Receive Date: 20130212
  Receipt Date: 20130212
  Transmission Date: 20140127
  Serious: Yes (Death)
  Sender: FDA-Public Use
  Company Number: BR-B.I. PHARMACEUTICALS,INC./RIDGEFIELD-2013-BR-00097BR

PATIENT
  Age: 83 Year
  Sex: Male
  Weight: 60 kg

DRUGS (6)
  1. SECOTEX [Suspect]
     Indication: PROSTATIC DISORDER
     Dosage: 0.4 MG
     Route: 048
     Dates: start: 20121114, end: 20121121
  2. LOSARTAN [Concomitant]
     Indication: HYPERTENSION
  3. CLOXAZOLAM [Concomitant]
     Indication: DEPRESSION
  4. MONOCORDIL [Concomitant]
     Indication: CARDIAC DISORDER
  5. LIPLESS [Concomitant]
     Indication: BLOOD CHOLESTEROL INCREASED
  6. LIPLESS [Concomitant]
     Indication: BLOOD TRIGLYCERIDES INCREASED

REACTIONS (3)
  - Myocardial infarction [Fatal]
  - Nausea [Not Recovered/Not Resolved]
  - Hypotension [Not Recovered/Not Resolved]
